FAERS Safety Report 10255508 (Version 1)
Quarter: 2014Q2

REPORT INFORMATION
  Report Type: Spontaneous
  Country: US (occurrence: None)
  Receive Date: 20140522
  Receipt Date: 20140522
  Transmission Date: 20141212
  Serious: No
  Sender: FDA-Public Use
  Company Number: 1000066160

PATIENT
  Sex: Female

DRUGS (5)
  1. ADVAIR DISKUS [Concomitant]
  2. VENTOLIN (ALBUTEROL) [Concomitant]
  3. IPRATROPIUM [Concomitant]
  4. TUDORZA PRESSAIR (ACLIDINIUM BROMIDE) (400 MICROGRAM, 2 IN 1 DAY) [Suspect]
     Indication: CHRONIC OBSTRUCTIVE PULMONARY DISEASE
     Dosage: 800MCG (400 MCG, 2 IN 1 D, 03/ 2014 - 03/ 2014 THERAPY DATES
     Dates: start: 201403, end: 201403
  5. SYMBICORT (BUDESONIDE W/ F0RMOTEROL FUMARATE) [Concomitant]

REACTIONS (2)
  - Chest discomfort [None]
  - Drug ineffective [None]
